FAERS Safety Report 4681735-2 (Version None)
Quarter: 2005Q2

REPORT INFORMATION
  Report Type: 
  Country: None (occurrence: None)
  Receive Date: 20050602
  Receipt Date: 20050519
  Transmission Date: 20051028
  Serious: Yes (Other)
  Sender: FDA-Public Use
  Company Number: 200512113BCC

PATIENT
  Age: 50 Year
  Sex: Female
  Weight: 158.759 kg

DRUGS (8)
  1. ALEVE [Suspect]
     Indication: ARTHRITIS
     Dosage: SEE IMAGE
     Route: 048
     Dates: start: 20050505, end: 20050517
  2. ALEVE [Suspect]
     Indication: ARTHRITIS
     Dosage: SEE IMAGE
     Route: 048
     Dates: start: 20050518, end: 20050519
  3. SYNTHROID [Concomitant]
  4. ALBUTEROL [Concomitant]
  5. SINGULAIR [Concomitant]
  6. ANTIBIOTIC (NOS) [Concomitant]
  7. SINUS MEDICATION (NOS) [Concomitant]
  8. ST. JOSEPH ASPIRIN [Concomitant]

REACTIONS (3)
  - HEART RATE INCREASED [None]
  - PALPITATIONS [None]
  - THERAPY NON-RESPONDER [None]
